FAERS Safety Report 8581597-7 (Version None)
Quarter: 2012Q3

REPORT INFORMATION
  Report Type: 
  Country: None (occurrence: None)
  Receive Date: 20120809
  Receipt Date: 20120801
  Transmission Date: 20120928
  Serious: Yes (Disabling, Other)
  Sender: FDA-Public Use
  Company Number: DE-ASTELLAS-2012EU004913

PATIENT
  Sex: Female
  Weight: 64 kg

DRUGS (4)
  1. MYFORTIC [Concomitant]
     Indication: RENAL TRANSPLANT
     Dosage: 720 MG, BID
     Route: 048
     Dates: start: 20080801
  2. CELLCEPT [Concomitant]
     Indication: RENAL TRANSPLANT
     Dosage: 2000 MG, UNKNOWN/D
     Route: 048
     Dates: start: 20070201, end: 20080801
  3. PROGRAF [Suspect]
     Indication: RENAL TRANSPLANT
     Dosage: UNK
     Route: 048
     Dates: start: 20070201, end: 20080801
  4. TACROLIMUS [Suspect]
     Indication: RENAL TRANSPLANT
     Dosage: UNK
     Route: 048
     Dates: start: 20080801, end: 20120301

REACTIONS (2)
  - LIVER FUNCTION TEST ABNORMAL [None]
  - HEPATIC CIRRHOSIS [None]
